FAERS Safety Report 12272360 (Version 1)
Quarter: 2016Q2

REPORT INFORMATION
  Report Type: Report from Study
  Country: US (occurrence: US)
  Receive Date: 20160415
  Receipt Date: 20160415
  Transmission Date: 20160815
  Serious: Yes (Hospitalization)
  Sender: FDA-Public Use
  Company Number: US-SA-2015SA199861

PATIENT
  Age: 55 Year
  Sex: Female

DRUGS (2)
  1. LEMTRADA [Suspect]
     Active Substance: ALEMTUZUMAB
     Indication: MULTIPLE SCLEROSIS
     Route: 041
     Dates: start: 20151026, end: 20151030
  2. LASIX [Suspect]
     Active Substance: FUROSEMIDE
     Indication: CELLULITIS
     Route: 065

REACTIONS (16)
  - Peripheral swelling [Recovering/Resolving]
  - Multiple sclerosis relapse [Recovering/Resolving]
  - Abasia [Recovering/Resolving]
  - Muscular weakness [Unknown]
  - Gastrointestinal motility disorder [Recovering/Resolving]
  - Nasopharyngitis [Not Recovered/Not Resolved]
  - Sneezing [Not Recovered/Not Resolved]
  - Walking aid user [Not Recovered/Not Resolved]
  - Cellulitis [Recovering/Resolving]
  - Bladder disorder [Recovering/Resolving]
  - Balance disorder [Not Recovered/Not Resolved]
  - Cough [Not Recovered/Not Resolved]
  - Dehydration [Unknown]
  - Nasal congestion [Not Recovered/Not Resolved]
  - Musculoskeletal stiffness [Unknown]
  - Throat irritation [Not Recovered/Not Resolved]

NARRATIVE: CASE EVENT DATE: 2015
